FAERS Safety Report 5582634-4 (Version None)
Quarter: 2008Q1

REPORT INFORMATION
  Report Type: 
  Country: None (occurrence: None)
  Receive Date: 20080107
  Receipt Date: 20080102
  Transmission Date: 20080703
  Serious: Yes (Life-Threatening, Other)
  Sender: FDA-Public Use
  Company Number: PHBS2007BR19337

PATIENT
  Age: 83 Year
  Sex: Male
  Weight: 59 kg

DRUGS (9)
  1. EXELON [Suspect]
     Indication: DEMENTIA ALZHEIMER'S TYPE
     Dosage: 4.5 MG, BID
     Route: 048
     Dates: start: 20050101, end: 20050201
  2. EXELON [Suspect]
     Dosage: 6 MG, BID
     Route: 048
     Dates: start: 20050201
  3. EXELON [Suspect]
     Dosage: 1.5 MG, BID
     Route: 048
     Dates: start: 20071118
  4. EXELON [Suspect]
     Dosage: 3 MG, BID
     Route: 048
  5. EXELON [Suspect]
     Dosage: 3 MG/D
     Route: 048
  6. ATENOLOL [Concomitant]
     Indication: CARDIAC DISORDER
     Dosage: 25 MG, QD
     Route: 048
  7. CITALOPRAM [Concomitant]
     Indication: DEPRESSION
     Dosage: 40 MG, QD
     Route: 048
  8. SEROQUEL [Concomitant]
     Indication: ABNORMAL BEHAVIOUR
     Dosage: 25 MG, QHS
     Route: 048
  9. MEMANTINE HCL [Concomitant]
     Indication: DEMENTIA ALZHEIMER'S TYPE
     Dosage: 10 MG, BID
     Route: 048

REACTIONS (21)
  - ABASIA [None]
  - ABNORMAL BEHAVIOUR [None]
  - AMNESIA [None]
  - BALANCE DISORDER [None]
  - COGNITIVE DISORDER [None]
  - CONDITION AGGRAVATED [None]
  - DEMENTIA ALZHEIMER'S TYPE [None]
  - DEPRESSION [None]
  - DISORIENTATION [None]
  - DYSGRAPHIA [None]
  - EYE DISORDER [None]
  - FALL [None]
  - FEELING COLD [None]
  - MALAISE [None]
  - MEMORY IMPAIRMENT [None]
  - MOTOR DYSFUNCTION [None]
  - PLEURAL DISORDER [None]
  - PULMONARY FIBROSIS [None]
  - SURGERY [None]
  - THERAPEUTIC PRODUCT CONTAMINATION [None]
  - UNEVALUABLE EVENT [None]
